FAERS Safety Report 19363168 (Version 1)
Quarter: 2021Q2

REPORT INFORMATION
  Report Type: Other
  Country: PT (occurrence: PT)
  Receive Date: 20210602
  Receipt Date: 20210602
  Transmission Date: 20210717
  Serious: Yes (Other)
  Sender: FDA-Public Use
  Company Number: PT-ROCHE-2839760

PATIENT
  Age: 53 Year
  Sex: Female

DRUGS (2)
  1. PERJETA [Suspect]
     Active Substance: PERTUZUMAB
     Indication: HER2 POSITIVE BREAST CANCER
     Route: 065
     Dates: start: 20210201
  2. HERZUMA [Suspect]
     Active Substance: TRASTUZUMAB-PKRB
     Indication: HER2 POSITIVE BREAST CANCER
     Dosage: POWDER FOR CONCENTRATE FOR SOLUTION FOR INFUSION
     Route: 042

REACTIONS (1)
  - Cardiotoxicity [Unknown]
